FAERS Safety Report 13172029 (Version 1)
Quarter: 2017Q1

REPORT INFORMATION
  Report Type: Spontaneous
  Country: US (occurrence: US)
  Receive Date: 20170131
  Receipt Date: 20170131
  Transmission Date: 20170428
  Serious: No
  Sender: FDA-Public Use
  Company Number: US-TARO-2016TAR00932

PATIENT
  Age: 74 Year
  Sex: Female
  Weight: 47.62 kg

DRUGS (4)
  1. MOMETASONE FUROATE CREAM USP 0.1% [Suspect]
     Active Substance: MOMETASONE FUROATE
     Indication: ERYTHEMA
     Dosage: 0.1 %, 2X/DAY
     Route: 061
     Dates: start: 20161104, end: 20161106
  2. DIOVAN [Concomitant]
     Active Substance: VALSARTAN
  3. CLONAZEPAM. [Concomitant]
     Active Substance: CLONAZEPAM
  4. LEVOXINE [Concomitant]
     Active Substance: LEVOTHYROXINE SODIUM

REACTIONS (3)
  - Inappropriate schedule of drug administration [Unknown]
  - Application site erythema [Not Recovered/Not Resolved]
  - Application site pain [Not Recovered/Not Resolved]

NARRATIVE: CASE EVENT DATE: 201611
